FAERS Safety Report 10045651 (Version 2)
Quarter: 2014Q2

REPORT INFORMATION
  Report Type: Spontaneous
  Country: FR (occurrence: FR)
  Receive Date: 20140328
  Receipt Date: 20140527
  Transmission Date: 20141212
  Serious: Yes (Hospitalization, Other)
  Sender: FDA-Public Use
  Company Number: FR-BRISTOL-MYERS SQUIBB COMPANY-20547162

PATIENT
  Age: 15 Year
  Sex: Male

DRUGS (2)
  1. ETOPOPHOS FOR INJ 100 MG [Suspect]
     Dosage: 100 MG
     Dates: start: 20140314
  2. ZOVIRAX [Concomitant]

REACTIONS (1)
  - Renal failure acute [Recovering/Resolving]
